FAERS Safety Report 6038728-2 (Version None)
Quarter: 2009Q1

REPORT INFORMATION
  Report Type: 
  Country: None (occurrence: None)
  Receive Date: 20090115
  Receipt Date: 20081211
  Transmission Date: 20090719
  Serious: No
  Sender: FDA-Public Use
  Company Number: US-BAYER-200814870BCC

PATIENT
  Age: 53 Year
  Sex: Female
  Weight: 45 kg

DRUGS (2)
  1. ALEVE (CAPLET) [Suspect]
     Indication: PAIN
     Dosage: TOTAL DAILY DOSE: 660 MG  UNIT DOSE: 220 MG
     Route: 048
     Dates: start: 20081128
  2. ALEVE (CAPLET) [Suspect]
     Route: 048
     Dates: start: 20080601

REACTIONS (3)
  - ABDOMINAL PAIN UPPER [None]
  - PAIN [None]
  - PROCEDURAL PAIN [None]
